FAERS Safety Report 23170107 (Version 1)
Quarter: 2023Q4

REPORT INFORMATION
  Report Type: Spontaneous
  Country: US (occurrence: US)
  Receive Date: 20231110
  Receipt Date: 20231110
  Transmission Date: 20240109
  Serious: No
  Sender: FDA-Public Use
  Company Number: US-PADAGIS-2023PAD01586

PATIENT

DRUGS (5)
  1. KETOCONAZOLE [Suspect]
     Active Substance: KETOCONAZOLE
     Indication: Seborrhoeic dermatitis
     Dosage: UNK
     Route: 061
  2. CLOTRIMAZOLE [Suspect]
     Active Substance: CLOTRIMAZOLE
     Indication: Seborrhoeic dermatitis
     Dosage: UNK
     Route: 061
  3. HYDROCORTISONE [Suspect]
     Active Substance: HYDROCORTISONE
     Indication: Seborrhoeic dermatitis
     Dosage: UNK
     Route: 061
  4. DESONIDE [Suspect]
     Active Substance: DESONIDE
     Indication: Seborrhoeic dermatitis
     Dosage: UNK
     Route: 061
  5. TRIAMCINOLONE ACETONIDE [Suspect]
     Active Substance: TRIAMCINOLONE ACETONIDE
     Indication: Seborrhoeic dermatitis
     Dosage: UNK
     Route: 061

REACTIONS (3)
  - Condition aggravated [Unknown]
  - Therapy partial responder [Unknown]
  - Product use in unapproved indication [Unknown]
